FAERS Safety Report 4603133-X (Version None)
Quarter: 2005Q1

REPORT INFORMATION
  Report Type: 
  Country: None (occurrence: None)
  Receive Date: 20050214
  Receipt Date: 20041130
  Transmission Date: 20050727
  Serious: No
  Sender: FDA-Public Use
  Company Number: USA041284894

PATIENT
  Sex: Male

DRUGS (2)
  1. CIALIS [Suspect]
  2. FLOMAX MR (TAMSULOSIN HYDROCHLORIDE) [Concomitant]

REACTIONS (1)
  - BLOOD PRESSURE DECREASED [None]
